FAERS Safety Report 10742424 (Version 1)
Quarter: 2015Q1

REPORT INFORMATION
  Report Type: Spontaneous
  Country: US (occurrence: US)
  Receive Date: 20150127
  Receipt Date: 20150127
  Transmission Date: 20150721
  Serious: Yes (Other)
  Sender: FDA-Public Use
  Company Number: US-MYLANLABS-2015M1001510

PATIENT

DRUGS (2)
  1. QUETIAPINE [Concomitant]
     Active Substance: QUETIAPINE
     Dosage: UP-TITRATED TO 150MG/DAY
     Route: 065
  2. LOXAPINE. [Suspect]
     Active Substance: LOXAPINE
     Dosage: TAPERED OFF OVER 3-4W
     Route: 065

REACTIONS (3)
  - Drug ineffective [Unknown]
  - Dyskinesia [Unknown]
  - Withdrawal syndrome [Unknown]
